FAERS Safety Report 16811048 (Version 5)
Quarter: 2020Q4

REPORT INFORMATION
  Report Type: Report from Study
  Country: US (occurrence: US)
  Receive Date: 20190916
  Receipt Date: 20201102
  Transmission Date: 20210113
  Serious: Yes (Other)
  Sender: FDA-Public Use
  Company Number: PHEH2019US037787

PATIENT
  Sex: Female

DRUGS (1)
  1. GILENYA [Suspect]
     Active Substance: FINGOLIMOD HYDROCHLORIDE
     Indication: RELAPSING-REMITTING MULTIPLE SCLEROSIS
     Dosage: 0.5 MG, QD
     Route: 048
     Dates: start: 20190821

REACTIONS (12)
  - Thyroid disorder [Unknown]
  - Fatigue [Unknown]
  - Dizziness [Unknown]
  - Product dose omission issue [Unknown]
  - Hepatic enzyme increased [Unknown]
  - Liver disorder [Unknown]
  - Pain in extremity [Unknown]
  - Hepatitis [Unknown]
  - Thyroid mass [Unknown]
  - Pyrexia [Unknown]
  - Asthenia [Unknown]
  - Inappropriate schedule of product administration [Unknown]
